FAERS Safety Report 20658967 (Version 1)
Quarter: 2022Q1

REPORT INFORMATION
  Report Type: Spontaneous
  Country: US (occurrence: None)
  Receive Date: 20220331
  Receipt Date: 20220331
  Transmission Date: 20220423
  Serious: No
  Sender: FDA-Public Use
  Company Number: None

PATIENT
  Sex: Male

DRUGS (1)
  1. TREMFYA [Suspect]
     Active Substance: GUSELKUMAB
     Indication: Psoriasis
     Dosage: OTHER FREQUENCY : WK0,4,8;?
     Route: 058
     Dates: start: 202203

REACTIONS (7)
  - Hypersensitivity [None]
  - Injection site swelling [None]
  - Injection site erythema [None]
  - Injection site pruritus [None]
  - Injection site warmth [None]
  - Rubber sensitivity [None]
  - Therapy cessation [None]
